FAERS Safety Report 5882942-3 (Version None)
Quarter: 2008Q3

REPORT INFORMATION
  Report Type: 
  Country: None (occurrence: None)
  Receive Date: 20080913
  Receipt Date: 20080822
  Transmission Date: 20090109
  Serious: No
  Sender: FDA-Public Use
  Company Number: US-ABBOTT-08P-163-0472141-00

PATIENT
  Sex: Female

DRUGS (5)
  1. HUMIRA [Suspect]
     Indication: CROHN'S DISEASE
     Dosage: 4 INJECTIONS
     Route: 058
     Dates: start: 20080401, end: 20080401
  2. HUMIRA [Suspect]
     Dosage: 2 INJECTIONS
  3. HUMIRA [Suspect]
  4. METRONIDAZOLE [Concomitant]
     Indication: CROHN'S DISEASE
     Dosage: 10 DAYS
     Route: 048
     Dates: start: 20080722, end: 20080801
  5. ROBINAL FORTE [Concomitant]
     Indication: MUSCLE SPASMS
     Dates: start: 20080722, end: 20080722

REACTIONS (1)
  - CROHN'S DISEASE [None]
